FAERS Safety Report 21324975 (Version 1)
Quarter: 2022Q3

REPORT INFORMATION
  Report Type: Spontaneous
  Country: US (occurrence: US)
  Receive Date: 20220912
  Receipt Date: 20220912
  Transmission Date: 20221027
  Serious: No
  Sender: FDA-Public Use
  Company Number: US-JNJFOC-20220906421

PATIENT
  Age: 43 Year

DRUGS (3)
  1. INVEGA SUSTENNA [Suspect]
     Active Substance: PALIPERIDONE PALMITATE
     Indication: Hallucination
     Route: 030
  2. INVEGA SUSTENNA [Suspect]
     Active Substance: PALIPERIDONE PALMITATE
     Indication: Delusion
  3. INVEGA SUSTENNA [Suspect]
     Active Substance: PALIPERIDONE PALMITATE

REACTIONS (8)
  - Anhedonia [Unknown]
  - Memory impairment [Unknown]
  - Blunted affect [Unknown]
  - Depression [Unknown]
  - Weight increased [Unknown]
  - Hypotonia [Unknown]
  - Agitation [Unknown]
  - Nervousness [Unknown]
